FAERS Safety Report 6110150-X (Version None)
Quarter: 2009Q1

REPORT INFORMATION
  Report Type: 
  Country: None (occurrence: None)
  Receive Date: 20090306
  Receipt Date: 20090306
  Transmission Date: 20090719
  Serious: No
  Sender: FDA-Public Use
  Company Number: None

PATIENT
  Age: 54 Year
  Sex: Female
  Weight: 63.5036 kg

DRUGS (1)
  1. CELEBREX [Suspect]
     Indication: OSTEOARTHRITIS
     Dosage: 1 1 PO
     Route: 048
     Dates: start: 20000124, end: 20090306

REACTIONS (7)
  - ABDOMINAL DISTENSION [None]
  - ABDOMINAL PAIN LOWER [None]
  - DIARRHOEA [None]
  - FLATULENCE [None]
  - HAEMORRHAGE [None]
  - ILL-DEFINED DISORDER [None]
  - MUSCLE SPASMS [None]
